FAERS Safety Report 16701673 (Version 1)
Quarter: 2019Q3

REPORT INFORMATION
  Report Type: Spontaneous
  Country: FR (occurrence: FR)
  Receive Date: 20190814
  Receipt Date: 20190814
  Transmission Date: 20191004
  Serious: Yes (Hospitalization)
  Sender: FDA-Public Use
  Company Number: FR-PFIZER INC-2019340365

PATIENT
  Age: 64 Year
  Sex: Female
  Weight: 50 kg

DRUGS (2)
  1. CYTARABINE. [Suspect]
     Active Substance: CYTARABINE
     Indication: ACUTE MYELOID LEUKAEMIA
     Dosage: 9400 MG, 1X/DAY
     Route: 042
     Dates: start: 20171021
  2. DESFERAL [Suspect]
     Active Substance: DEFEROXAMINE MESYLATE
     Indication: PROPHYLAXIS
     Dosage: 2500 MG, 1X/DAY
     Route: 042
     Dates: start: 20171030, end: 20171109

REACTIONS (4)
  - Dyschromatopsia [Not Recovered/Not Resolved]
  - Retinal detachment [Recovered/Resolved]
  - Visual acuity reduced [Recovered/Resolved]
  - Macular oedema [Recovered/Resolved]

NARRATIVE: CASE EVENT DATE: 20171102
